FAERS Safety Report 4835359-4 (Version None)
Quarter: 2005Q4

REPORT INFORMATION
  Report Type: 
  Country: None (occurrence: None)
  Receive Date: 20051114
  Receipt Date: 20051101
  Transmission Date: 20060501
  Serious: Yes (Death, Hospitalization)
  Sender: FDA-Public Use
  Company Number: 200509557

PATIENT
  Age: 71 Year
  Sex: Female

DRUGS (12)
  1. BOTOX [Suspect]
     Indication: TORTICOLLIS
     Dates: start: 20020201
  2. CLOZAPINE [Suspect]
     Indication: PARKINSON'S DISEASE
     Dosage: 25 MG QHS PO
     Route: 048
     Dates: start: 20020501, end: 20050701
  3. FLUOXETINE HYDROCHLORIDE [Concomitant]
  4. CARBIDOPA AND LEVODOPA [Concomitant]
  5. TRAMADOL HCL [Concomitant]
  6. MORPHINE [Concomitant]
  7. PANTOPRAZOLE [Concomitant]
  8. ESTROGEN [Concomitant]
  9. OXYCODONE [Concomitant]
  10. TERAZOSIN [Concomitant]
  11. CELECOXIB [Concomitant]
  12. PARACETAMOL [Concomitant]

REACTIONS (2)
  - OVERDOSE [None]
  - RESPIRATORY FAILURE [None]
